FAERS Safety Report 13024109 (Version 2)
Quarter: 2017Q1

REPORT INFORMATION
  Report Type: Spontaneous
  Country: US (occurrence: US)
  Receive Date: 20161213
  Receipt Date: 20170126
  Transmission Date: 20170428
  Serious: Yes (Death)
  Sender: FDA-Public Use
  Company Number: US-CELGENEUS-USA-2016056307

PATIENT

DRUGS (19)
  1. POSACONAZOLE [Concomitant]
     Active Substance: POSACONAZOLE
     Indication: INFECTION PROPHYLAXIS
     Dosage: 200 MG
     Route: 048
     Dates: start: 20160415, end: 20160428
  2. PIPERACILLIN/TAZOBACTAM [Concomitant]
     Active Substance: PIPERACILLIN SODIUM\TAZOBACTAM SODIUM
     Indication: INFECTION PROPHYLAXIS
     Dosage: 2.25 G
     Route: 041
     Dates: start: 20160425, end: 20160427
  3. ACETAMINOPHEN. [Concomitant]
     Active Substance: ACETAMINOPHEN
     Indication: PYREXIA
     Dosage: 650 MG
     Route: 048
     Dates: start: 20160425, end: 20160427
  4. PLATELETS [Concomitant]
     Active Substance: HUMAN PLATELET, ALLOGENIC
     Indication: TRANSFUSION
     Route: 050
     Dates: start: 20151231, end: 20160426
  5. MAFENIDE ACETATE. [Concomitant]
     Active Substance: MAFENIDE ACETATE
     Indication: CHRONIC LYMPHOCYTIC LEUKAEMIA
     Dosage: 1 APPLICATION
     Route: 061
     Dates: start: 20160316, end: 20160428
  6. LEVOFLOXACIN. [Concomitant]
     Active Substance: LEVOFLOXACIN
     Indication: INFECTION PROPHYLAXIS
     Dosage: 500 MG
     Route: 048
     Dates: start: 20160411, end: 20160425
  7. LEVOFLOXACIN. [Concomitant]
     Active Substance: LEVOFLOXACIN
     Indication: NEUTROPENIA
  8. HYDROMORPHONE [Concomitant]
     Active Substance: HYDROMORPHONE
     Indication: PAIN
     Dosage: 0.3 MG
     Route: 041
     Dates: start: 20160425, end: 20160427
  9. PRBC [Concomitant]
     Indication: TRANSFUSION
     Route: 050
     Dates: start: 20150722, end: 20160426
  10. BIOLEX WOUND CLEANSER [Concomitant]
     Indication: CHRONIC LYMPHOCYTIC LEUKAEMIA
     Dosage: 1 APPLICATION
     Route: 061
     Dates: start: 20151027, end: 20160428
  11. HYDROCODONE BITARTRATE AND ACETAMINOPHEN [Concomitant]
     Active Substance: ACETAMINOPHEN\HYDROCODONE BITARTRATE
     Indication: PAIN
     Dosage: 10/325MG
     Route: 048
     Dates: start: 20160419, end: 20160428
  12. VIDAZA [Suspect]
     Active Substance: AZACITIDINE
     Indication: MYELODYSPLASTIC SYNDROME
     Dosage: 160 MG
     Route: 041
     Dates: start: 20151116, end: 20160311
  13. OMEPRAZOLE. [Concomitant]
     Active Substance: OMEPRAZOLE
     Indication: CHRONIC LYMPHOCYTIC LEUKAEMIA
     Dosage: 20 MG
     Route: 048
     Dates: start: 20160415, end: 20160428
  14. CHLORAMBUCIL [Concomitant]
     Active Substance: CHLORAMBUCIL
     Indication: CHRONIC LYMPHOCYTIC LEUKAEMIA
     Dosage: 0.8 MG/M2
     Route: 048
  15. VANCOMYCIN [Concomitant]
     Active Substance: VANCOMYCIN
     Indication: INFECTION PROPHYLAXIS
     Dosage: 1000 MG
     Route: 041
     Dates: start: 20160426, end: 20160427
  16. VANCOMYCIN [Concomitant]
     Active Substance: VANCOMYCIN
     Indication: NEUTROPENIA
  17. DOCUSATE [Concomitant]
     Active Substance: DOCUSATE
     Indication: CONSTIPATION PROPHYLAXIS
     Dosage: 300 MG
     Route: 048
     Dates: start: 20160327, end: 20160428
  18. TRIAMCINOLONE [Concomitant]
     Active Substance: TRIAMCINOLONE
     Indication: SKIN IRRITATION
     Dosage: 1 APPLICATION
     Route: 061
     Dates: start: 20151109, end: 20160428
  19. PIPERACILLIN/TAZOBACTAM [Concomitant]
     Active Substance: PIPERACILLIN SODIUM\TAZOBACTAM SODIUM
     Indication: NEUTROPENIA

REACTIONS (1)
  - Myelodysplastic syndrome [Fatal]
